FAERS Safety Report 7945580-4 (Version None)
Quarter: 2011Q4

REPORT INFORMATION
  Report Type: 
  Country: None (occurrence: None)
  Receive Date: 20111129
  Receipt Date: 20111121
  Transmission Date: 20120403
  Serious: No
  Sender: FDA-Public Use
  Company Number: US-JNJFOC-20111109419

PATIENT
  Sex: Male

DRUGS (5)
  1. BENZTROPINE MESYLATE [Concomitant]
     Dosage: 4MG/PILL/2MG/TWICE  DAILY
     Route: 048
  2. INVEGA SUSTENNA [Suspect]
     Indication: SCHIZOPHRENIA
     Route: 030
     Dates: start: 20090101
  3. TAZTIA XT [Concomitant]
     Route: 048
  4. PRILOSEC [Concomitant]
     Route: 048
  5. FLOMAX [Concomitant]
     Route: 048

REACTIONS (1)
  - DRUG DOSE OMISSION [None]
